FAERS Safety Report 21178109 (Version 2)
Quarter: 2022Q3

REPORT INFORMATION
  Report Type: Spontaneous
  Country: FR (occurrence: FR)
  Receive Date: 20220805
  Receipt Date: 20220816
  Transmission Date: 20221027
  Serious: Yes (Hospitalization)
  Sender: FDA-Public Use
  Company Number: FR-BIOGEN-2022BI01143615

PATIENT
  Age: 62 Year
  Sex: Female

DRUGS (2)
  1. PLEGRIDY [Suspect]
     Active Substance: PEGINTERFERON BETA-1A
     Indication: Multiple sclerosis
     Route: 050
     Dates: start: 2018
  2. LEVOTHYROXINE [Concomitant]
     Active Substance: LEVOTHYROXINE
     Indication: Thyroid disorder
     Route: 050

REACTIONS (4)
  - Pancreatitis [Unknown]
  - Osteoporosis [Not Recovered/Not Resolved]
  - Renal tubular disorder [Unknown]
  - Urinary tract obstruction [Unknown]

NARRATIVE: CASE EVENT DATE: 20220721
